FAERS Safety Report 8163457-9 (Version None)
Quarter: 2012Q1

REPORT INFORMATION
  Report Type: 
  Country: None (occurrence: None)
  Receive Date: 20120224
  Receipt Date: 20120224
  Transmission Date: 20120608
  Serious: Yes (Other)
  Sender: FDA-Public Use
  Company Number: IT-JNJFOC-20120209750

PATIENT
  Age: 37 Year
  Sex: Female

DRUGS (1)
  1. TRAMADOL HCL [Suspect]
     Indication: PAIN
     Dosage: 1 TABLET AS NEEDED
     Route: 048
     Dates: start: 20111215, end: 20111215

REACTIONS (2)
  - ASTHMATIC CRISIS [None]
  - ANTICHOLINERGIC SYNDROME [None]
